FAERS Safety Report 9665705 (Version 1)
Quarter: 2013Q4

REPORT INFORMATION
  Report Type: Spontaneous
  Country: US (occurrence: None)
  Receive Date: 20131031
  Receipt Date: 20131031
  Transmission Date: 20140711
  Serious: Yes (Hospitalization)
  Sender: FDA-Public Use
  Company Number: None

PATIENT
  Age: 27 Year
  Sex: Female
  Weight: 97.1 kg

DRUGS (4)
  1. HYDROMORPHONE [Suspect]
     Indication: PAIN
     Route: 042
     Dates: start: 20110805, end: 20110805
  2. FERROUS SULFATE [Concomitant]
  3. KETOROLAC [Concomitant]
  4. MAGNESIUM SULFATE [Concomitant]

REACTIONS (2)
  - Blood pressure decreased [None]
  - Lethargy [None]
